FAERS Safety Report 8638357 (Version 4)
Quarter: 2013Q1

REPORT INFORMATION
  Report Type: Spontaneous
  Country: JP (occurrence: JP)
  Receive Date: 20120627
  Receipt Date: 20130306
  Transmission Date: 20140127
  Serious: Yes (Hospitalization, Other)
  Sender: FDA-Public Use
  Company Number: JP-ROCHE-1080788

PATIENT
  Age: 77 Year
  Sex: Male
  Weight: 56 kg

DRUGS (10)
  1. AVASTIN [Suspect]
     Indication: RECTAL CANCER RECURRENT
     Dosage: DOSAGE IS UNCERTAIN.
     Route: 041
     Dates: start: 20120409, end: 20120604
  2. ELPLAT [Suspect]
     Indication: RECTAL CANCER RECURRENT
     Route: 041
     Dates: start: 20120409, end: 20120604
  3. 5-FU [Suspect]
     Indication: RECTAL CANCER RECURRENT
     Route: 040
     Dates: start: 20120409, end: 20120604
  4. 5-FU [Suspect]
     Indication: RECTAL CANCER RECURRENT
     Route: 041
     Dates: start: 20120409, end: 20120606
  5. ISOVORIN [Suspect]
     Indication: RECTAL CANCER RECURRENT
     Route: 041
     Dates: start: 20120409, end: 20120606
  6. NEUTROGIN [Suspect]
     Indication: NEUTROPHIL COUNT DECREASED
     Route: 058
     Dates: start: 20120616, end: 20120616
  7. NEUTROGIN [Suspect]
     Indication: NEUTROPHIL COUNT DECREASED
     Route: 058
     Dates: start: 20121109, end: 20121109
  8. NEUTROGIN [Suspect]
     Indication: NEUTROPENIA
     Route: 058
     Dates: start: 20121215, end: 20121215
  9. NEUTROGIN [Suspect]
     Indication: NEUTROPENIA
     Route: 058
     Dates: start: 20121222, end: 20121222
  10. CAMPTO [Suspect]
     Indication: RECTAL CANCER RECURRENT
     Route: 041
     Dates: start: 20121022, end: 20121217

REACTIONS (7)
  - Interstitial lung disease [Not Recovered/Not Resolved]
  - Interstitial lung disease [Recovering/Resolving]
  - Neutrophil count decreased [Recovering/Resolving]
  - Neutrophil count decreased [Unknown]
  - Diarrhoea [Recovered/Resolved]
  - Haemoglobin decreased [Recovering/Resolving]
  - White blood cell count decreased [Unknown]
